FAERS Safety Report 26107509 (Version 1)
Quarter: 2025Q4

REPORT INFORMATION
  Report Type: Spontaneous
  Country: US (occurrence: None)
  Receive Date: 20251126
  Receipt Date: 20251126
  Transmission Date: 20260118
  Serious: Yes (Hospitalization)
  Sender: FDA-CTU
  Company Number: None

PATIENT
  Age: 35 Year
  Sex: Female

DRUGS (3)
  1. SIMPONI ARIA [Suspect]
     Active Substance: GOLIMUMAB
     Dosage: OTHER QUANTITY : UNKNOWN (FOR ENBREL AND CIMZIA AND SIMPONI ARIAJ;?OTHER FREQUENCY : UNKNOWN (FOR ENBREL AND CIMZIA AND SIMPONI ARIAJ;?
     Route: 058
  2. ENBREL [Suspect]
     Active Substance: ETANERCEPT
  3. CIMZIA [Suspect]
     Active Substance: CERTOLIZUMAB PEGOL

REACTIONS (5)
  - Off label use [None]
  - Injection site erythema [None]
  - Injection site swelling [None]
  - Documented hypersensitivity to administered product [None]
  - Hypersensitivity [None]
